FAERS Safety Report 11387838 (Version 1)
Quarter: 2015Q3

REPORT INFORMATION
  Report Type: Spontaneous
  Country: US (occurrence: US)
  Receive Date: 20150817
  Receipt Date: 20150817
  Transmission Date: 20151125
  Serious: Yes (Other)
  Sender: FDA-Public Use
  Company Number: US-PFIZER INC-2015271795

PATIENT
  Age: 73 Year
  Sex: Female
  Weight: 118 kg

DRUGS (1)
  1. PRISTIQ EXTENDED RELEASE [Suspect]
     Active Substance: DESVENLAFAXINE SUCCINATE
     Indication: DEPRESSION
     Dosage: UNK

REACTIONS (5)
  - Sleep disorder [Unknown]
  - Suicidal ideation [Unknown]
  - Abnormal dreams [Unknown]
  - Thinking abnormal [Unknown]
  - Nightmare [Unknown]
